FAERS Safety Report 6491377-4 (Version None)
Quarter: 2009Q4

REPORT INFORMATION
  Report Type: 
  Country: None (occurrence: None)
  Receive Date: 20091208
  Receipt Date: 20091130
  Transmission Date: 20100525
  Serious: Yes (Disabling)
  Sender: FDA-Public Use
  Company Number: 2009AL007474

PATIENT
  Sex: Female

DRUGS (2)
  1. METOCLPRAMIDE                  (PUREPAC) [Suspect]
     Indication: MIGRAINE
     Dosage: 10 MG; PO
     Route: 048
     Dates: start: 20030101
  2. METOCLPRAMIDE                  (PUREPAC) [Suspect]
     Indication: NAUSEA
     Dosage: 10 MG; PO
     Route: 048
     Dates: start: 20030101

REACTIONS (9)
  - ACTIVITIES OF DAILY LIVING IMPAIRED [None]
  - DEFORMITY [None]
  - EMOTIONAL DISTRESS [None]
  - EXTRAPYRAMIDAL DISORDER [None]
  - IMPAIRED WORK ABILITY [None]
  - MENTAL DISORDER [None]
  - NERVOUS SYSTEM DISORDER [None]
  - PAIN [None]
  - TARDIVE DYSKINESIA [None]
